FAERS Safety Report 5519270-1 (Version None)
Quarter: 2007Q4

REPORT INFORMATION
  Report Type: 
  Country: None (occurrence: None)
  Receive Date: 20071116
  Receipt Date: 20071112
  Transmission Date: 20080405
  Serious: Yes (Other)
  Sender: FDA-Public Use
  Company Number: AU-AVENTIS-200718423GDDC

PATIENT
  Age: 52 Year
  Sex: Male

DRUGS (4)
  1. ARAVA [Suspect]
     Indication: RHEUMATOID ARTHRITIS
     Route: 048
     Dates: start: 20050911
  2. DICLOFENAC SODIUM [Concomitant]
     Dosage: DOSE: UNK
  3. TRAMADOL HCL [Concomitant]
     Dosage: DOSE: UNK
  4. PANADEINE                          /00116401/ [Concomitant]
     Dosage: DOSE: UNK

REACTIONS (2)
  - LUNG NEOPLASM [None]
  - PNEUMONIA [None]
